FAERS Safety Report 5321203-8 (Version None)
Quarter: 2007Q1

REPORT INFORMATION
  Report Type: 
  Country: None (occurrence: None)
  Receive Date: 20070215
  Receipt Date: 20060918
  Transmission Date: 20070707
  Serious: No
  Sender: FDA-Public Use
  Company Number: 200615729BWH

PATIENT
  Age: 46 Year
  Sex: Female

DRUGS (6)
  1. NEXAVAR [Suspect]
     Indication: OVARIAN CANCER
     Dosage: SEE IMAGE
     Route: 048
     Dates: start: 20060818, end: 20060825
  2. NEXAVAR [Suspect]
     Indication: OVARIAN CANCER
     Dosage: SEE IMAGE
     Route: 048
     Dates: start: 20060826
  3. HYCAMPTIN (TOPOTECAN) [Suspect]
     Indication: OVARIAN CANCER
     Dosage: 4 MG, TOTAL DAILY, INTRAVENOUS
     Route: 042
  4. PROTONIX [Concomitant]
  5. SUPPLEMENTAL IRON [Concomitant]
  6. ANTI-EMETICS (NOS) [Concomitant]

REACTIONS (8)
  - ACNE [None]
  - ARTHRALGIA [None]
  - BACK PAIN [None]
  - BLOOD PRESSURE INCREASED [None]
  - DYSPHONIA [None]
  - HYPOAESTHESIA [None]
  - MYALGIA [None]
  - PARAESTHESIA [None]
